FAERS Safety Report 19646732 (Version 1)
Quarter: 2021Q3

REPORT INFORMATION
  Report Type: Spontaneous
  Country: US (occurrence: US)
  Receive Date: 20210802
  Receipt Date: 20210802
  Transmission Date: 20211014
  Serious: No
  Sender: FDA-Public Use
  Company Number: None

PATIENT
  Age: 65 Year
  Sex: Female
  Weight: 77.56 kg

DRUGS (22)
  1. ESOMEPRAZOLE MAGNESIUM. [Concomitant]
     Active Substance: ESOMEPRAZOLE MAGNESIUM
  2. LEVOTHYROXINE SODIUM. [Concomitant]
     Active Substance: LEVOTHYROXINE SODIUM
  3. POTASSIUM CHLORIDE CRYS ER [Concomitant]
     Active Substance: POTASSIUM CHLORIDE
  4. CAPECITABINE. [Suspect]
     Active Substance: CAPECITABINE
     Indication: BREAST CANCER
     Route: 048
     Dates: start: 20210623
  5. ELIQUIS [Concomitant]
     Active Substance: APIXABAN
  6. L?LYSINE HCL [Concomitant]
  7. MELOXICAM. [Concomitant]
     Active Substance: MELOXICAM
  8. FUROSEMIDE. [Concomitant]
     Active Substance: FUROSEMIDE
  9. HYDROMORPHONE HCL [Concomitant]
     Active Substance: HYDROMORPHONE HYDROCHLORIDE
  10. L?PROLINE [Concomitant]
  11. METAMUCIL [Concomitant]
     Active Substance: PLANTAGO SEED
  12. URINARY WITH CRANBERRY [Concomitant]
  13. COENZYME Q10 [Concomitant]
     Active Substance: DIETARY SUPPLEMENT\UBIDECARENONE
  14. ZEAXANTHIN [Concomitant]
     Active Substance: ZEAXANTHIN
  15. ASCORBIC ACID. [Concomitant]
     Active Substance: ASCORBIC ACID
  16. B?STRESS [Concomitant]
  17. TEA [Concomitant]
     Active Substance: TEA LEAF
  18. LETROZOLE. [Concomitant]
     Active Substance: LETROZOLE
  19. TURMERIC [Concomitant]
     Active Substance: HERBALS\TURMERIC
  20. URINARY WITH CRANBERRY [Concomitant]
  21. CALCIUM CITRATE [Concomitant]
     Active Substance: CALCIUM CITRATE
  22. OFCAP DIETARY SUPPLEMENT [Concomitant]

REACTIONS (2)
  - Syncope [None]
  - Pulmonary thrombosis [None]

NARRATIVE: CASE EVENT DATE: 20210802
